FAERS Safety Report 10972238 (Version 2)
Quarter: 2015Q2

REPORT INFORMATION
  Report Type: Spontaneous
  Country: US (occurrence: US)
  Receive Date: 20150331
  Receipt Date: 20150525
  Transmission Date: 20150821
  Serious: No
  Sender: FDA-Public Use
  Company Number: US-JNJFOC-20140211578

PATIENT
  Sex: Male
  Weight: 84.37 kg

DRUGS (1)
  1. RISPERDAL [Suspect]
     Active Substance: RISPERIDONE
     Indication: SCHIZOAFFECTIVE DISORDER
     Route: 048
     Dates: end: 201112

REACTIONS (2)
  - Somnolence [Recovered/Resolved]
  - Wrong technique in drug usage process [Recovered/Resolved]
